FAERS Safety Report 6397315-7 (Version None)
Quarter: 2009Q4

REPORT INFORMATION
  Report Type: 
  Country: None (occurrence: None)
  Receive Date: 20091012
  Receipt Date: 20090930
  Transmission Date: 20100525
  Serious: Yes (Hospitalization)
  Sender: FDA-Public Use
  Company Number: US-SANOFI-SYNTHELABO-A03200904053

PATIENT
  Sex: Male
  Weight: 76.2 kg

DRUGS (4)
  1. AMBIEN CR [Suspect]
     Indication: INSOMNIA
     Route: 048
     Dates: start: 20090611, end: 20090625
  2. OXYCODONE [Concomitant]
     Indication: PAIN
     Dosage: ONE TABLET EVERY FOUR HOURS AS NEEDED FOR SEVERE PAIN
     Route: 048
  3. COLESTID [Concomitant]
     Indication: DRUG USE FOR UNKNOWN INDICATION
     Route: 048
  4. AMITRIPTYLINE [Concomitant]
     Indication: DRUG USE FOR UNKNOWN INDICATION
     Route: 048
     Dates: end: 20090601

REACTIONS (9)
  - AGITATION [None]
  - AMMONIA INCREASED [None]
  - CONFUSIONAL STATE [None]
  - ELECTROCARDIOGRAM QT PROLONGED [None]
  - HALLUCINATION [None]
  - HEAD INJURY [None]
  - PSYCHOTIC DISORDER [None]
  - SINUS TACHYCARDIA [None]
  - SOMNAMBULISM [None]
